FAERS Safety Report 4542251-1 (Version None)
Quarter: 2004Q4

REPORT INFORMATION
  Report Type: 
  Country: None (occurrence: None)
  Receive Date: 20041227
  Receipt Date: 20041102
  Transmission Date: 20050328
  Serious: Yes (Disabling)
  Sender: FDA-Public Use
  Company Number: 9224

PATIENT
  Age: 49 Year
  Sex: Female
  Weight: 180 kg

DRUGS (10)
  1. METHOTREXATE [Suspect]
     Indication: RHEUMATOID ARTHRITIS
     Dosage: 0.3 WEEKLY SC
     Route: 058
     Dates: start: 20040302
  2. METHOTREXATE [Suspect]
     Indication: RHEUMATOID ARTHRITIS
     Dosage: 1 WEEKLY SC
     Route: 058
  3. HYDROCHLOROQUINE [Concomitant]
  4. NEXIUM [Concomitant]
  5. RESERPINE [Concomitant]
  6. PREMARIN COMPOSITUM [Concomitant]
  7. WELLBUTRIN [Concomitant]
  8. WOBENZYME [Concomitant]
  9. ALKA PAN [Concomitant]
  10. FOLIC ACID [Concomitant]

REACTIONS (3)
  - C-REACTIVE PROTEIN INCREASED [None]
  - DRUG INEFFECTIVE [None]
  - PHARMACEUTICAL PRODUCT COMPLAINT [None]
